FAERS Safety Report 4470639-6 (Version None)
Quarter: 2004Q4

REPORT INFORMATION
  Report Type: 
  Country: None (occurrence: None)
  Receive Date: 20041011
  Receipt Date: 20040930
  Transmission Date: 20050328
  Serious: Yes (Hospitalization)
  Sender: FDA-Public Use
  Company Number: 200417547US

PATIENT
  Age: 53 Year
  Sex: Female

DRUGS (5)
  1. ARAVA [Suspect]
     Indication: RHEUMATOID ARTHRITIS
     Route: 048
     Dates: end: 20040901
  2. ENBREL [Concomitant]
     Dosage: DOSE: NOT PROVIDED
  3. METHOTREXATE [Concomitant]
     Dosage: DOSE: NOT PROVIDED
  4. PREDNISONE [Concomitant]
     Dosage: DOSE: LOW DOSE
  5. CELEBREX [Concomitant]
     Dosage: DOSE: NOT PROVIDED

REACTIONS (3)
  - PNEUMONITIS [None]
  - RESPIRATORY FAILURE [None]
  - RHEUMATOID LUNG [None]
